FAERS Safety Report 8052948-7 (Version None)
Quarter: 2012Q1

REPORT INFORMATION
  Report Type: 
  Country: None (occurrence: None)
  Receive Date: 20120118
  Receipt Date: 20120110
  Transmission Date: 20120608
  Serious: Yes (Other)
  Sender: FDA-Public Use
  Company Number: US-CELGENEUS-163-21880-12011032

PATIENT
  Age: 80 Year
  Sex: Female

DRUGS (6)
  1. REVLIMID [Suspect]
     Indication: MULTIPLE MYELOMA
     Dosage: 10 MILLIGRAM
     Route: 048
     Dates: start: 20111229
  2. FAMOTIDINE [Concomitant]
     Route: 065
  3. DECADRON [Concomitant]
     Dosage: 20 MILLIGRAM
     Route: 065
     Dates: start: 20111229
  4. LOVASTATIN [Concomitant]
     Route: 065
  5. GLIPIZIDE [Concomitant]
     Route: 065
  6. OXYBUTYNIN [Concomitant]
     Route: 065

REACTIONS (5)
  - MUSCULAR WEAKNESS [None]
  - CONTUSION [None]
  - COUGH [None]
  - BALANCE DISORDER [None]
  - FALL [None]
